FAERS Safety Report 21921660 (Version 2)
Quarter: 2023Q2

REPORT INFORMATION
  Report Type: Spontaneous
  Country: DE (occurrence: DE)
  Receive Date: 20230127
  Receipt Date: 20230410
  Transmission Date: 20230721
  Serious: Yes (Hospitalization)
  Sender: FDA-Public Use
  Company Number: DE-JNJFOC-20230134044

PATIENT
  Sex: Male
  Weight: 93 kg

DRUGS (5)
  1. DEXAMETHASONE [Suspect]
     Active Substance: DEXAMETHASONE
     Indication: Plasma cell myeloma
     Dosage: LAST DOSE BEFORE EVENT WAS ON 22/DEC/2022
     Route: 042
     Dates: start: 20221114
  2. DEXAMETHASONE [Suspect]
     Active Substance: DEXAMETHASONE
     Indication: Plasma cell myeloma
     Dosage: LAST DOSE BEFORE EVENT WAS ON 20/DEC/2022
     Route: 048
     Dates: start: 20221115
  3. BORTEZOMIB [Suspect]
     Active Substance: BORTEZOMIB
     Indication: Plasma cell myeloma
     Dosage: LAST DOSE BEFORE EVENT WAS ON 22/DEC/2022
     Route: 042
     Dates: start: 20221114
  4. DARATUMUMAB [Suspect]
     Active Substance: DARATUMUMAB
     Indication: Plasma cell myeloma
     Dosage: LAST DOSE BEFORE EVENT WAS ON 19/DEC/2022
     Route: 058
     Dates: start: 20221114
  5. THALIDOMIDE [Suspect]
     Active Substance: THALIDOMIDE
     Indication: Plasma cell myeloma
     Dosage: LAST DOSE BEFORE EVENT WAS ON 24/DEC/2022
     Route: 048
     Dates: start: 20221114

REACTIONS (1)
  - COVID-19 [Recovering/Resolving]

NARRATIVE: CASE EVENT DATE: 20221223
